FAERS Safety Report 13900256 (Version 1)
Quarter: 2017Q3

REPORT INFORMATION
  Report Type: Spontaneous
  Country: NL (occurrence: NL)
  Receive Date: 20170824
  Receipt Date: 20170824
  Transmission Date: 20171127
  Serious: Yes (Hospitalization, Other)
  Sender: FDA-Public Use
  Company Number: NL-GLAXOSMITHKLINE-NL2017GSK130964

PATIENT
  Sex: Female
  Weight: 64 kg

DRUGS (2)
  1. SYMBICORT [Suspect]
     Active Substance: BUDESONIDE\FORMOTEROL FUMARATE DIHYDRATE
     Indication: ASTHMA EXERCISE INDUCED
     Dosage: UNK
     Dates: start: 200902, end: 200902
  2. VENTOLIN [Suspect]
     Active Substance: ALBUTEROL SULFATE
     Indication: ASTHMA EXERCISE INDUCED
     Dosage: 200 MCG/MG, UNK
     Dates: start: 200903, end: 200903

REACTIONS (8)
  - Chest pain [Unknown]
  - Tremor [Unknown]
  - Blood pressure decreased [Unknown]
  - Hypertonia [Unknown]
  - Arrhythmia [Unknown]
  - Bronchospasm [Unknown]
  - Dizziness [Unknown]
  - Muscle spasms [Unknown]

NARRATIVE: CASE EVENT DATE: 2009
